FAERS Safety Report 20567177 (Version 1)
Quarter: 2022Q1

REPORT INFORMATION
  Report Type: Report from Study
  Country: US (occurrence: US)
  Receive Date: 20220308
  Receipt Date: 20220308
  Transmission Date: 20220423
  Serious: Yes (Other)
  Sender: FDA-Public Use
  Company Number: US-NOVARTISPH-NVSC2022US052071

PATIENT
  Sex: Female

DRUGS (1)
  1. PROMACTA [Suspect]
     Active Substance: ELTROMBOPAG OLAMINE
     Indication: Product used for unknown indication
     Dosage: UNK
     Route: 048

REACTIONS (7)
  - Glaucoma [Unknown]
  - Red blood cell count decreased [Unknown]
  - Diarrhoea [Unknown]
  - Jaundice [Unknown]
  - Eye colour change [Unknown]
  - Product availability issue [Unknown]
  - Platelet count decreased [Unknown]
